FAERS Safety Report 7635317-0 (Version None)
Quarter: 2011Q3

REPORT INFORMATION
  Report Type: 
  Country: None (occurrence: None)
  Receive Date: 20110718
  Receipt Date: 20110701
  Transmission Date: 20111222
  Serious: Yes (Life-Threatening, Hospitalization, Other)
  Sender: FDA-Public Use
  Company Number: 018128

PATIENT
  Age: 69 Year
  Sex: Female
  Weight: 68 kg

DRUGS (13)
  1. MIGLITOL [Concomitant]
  2. SANCOBA (CYANOCOBALAMIN) [Concomitant]
  3. SOLETON (ZALTOPROFEN) [Concomitant]
  4. NOVOLOG [Concomitant]
  5. SELBEX (TEPRENONE) [Concomitant]
  6. METFORMIN HYDROCHLORIDE [Concomitant]
  7. ZETIA [Concomitant]
  8. KETOPROFEN [Concomitant]
  9. VOLTAREN [Concomitant]
  10. PEGAPTANIB SODIUM;PLACEBO (CODE NOT BROKEN) [Suspect]
     Indication: DIABETIC RETINAL OEDEMA
     Dates: start: 20110113, end: 20110518
  11. CABAGIN (CINNAMON, POWDERED, DIASTASE, LIQURICE, MENTHOL, NISIN, SCOPO [Concomitant]
  12. OPALMON (LIMAPROST) [Concomitant]
  13. ALOSENN (ALHILLEA, RUBIA ROOT TINCTURE, SENNA FRUIT, SENNA LEAF, TARAX [Concomitant]

REACTIONS (2)
  - MALAISE [None]
  - ANGINA PECTORIS [None]
